FAERS Safety Report 5342309-3 (Version None)
Quarter: 2007Q2

REPORT INFORMATION
  Report Type: 
  Country: None (occurrence: None)
  Receive Date: 20070601
  Receipt Date: 20070402
  Transmission Date: 20071010
  Serious: No
  Sender: FDA-Public Use
  Company Number: A0645453A

PATIENT
  Age: 48 Year
  Sex: Male
  Weight: 95.5 kg

DRUGS (1)
  1. ALLI [Suspect]
     Route: 065

REACTIONS (1)
  - DIARRHOEA [None]
